FAERS Safety Report 13426572 (Version 4)
Quarter: 2017Q2

REPORT INFORMATION
  Report Type: Report from Study
  Country: US (occurrence: US)
  Receive Date: 20170411
  Receipt Date: 20170427
  Transmission Date: 20170830
  Serious: Yes (Death, Hospitalization, Other)
  Sender: FDA-Public Use
  Company Number: US-ALEXION-A201703477

PATIENT
  Age: 86 Year
  Sex: Female

DRUGS (1)
  1. SOLIRIS [Suspect]
     Active Substance: ECULIZUMAB
     Indication: HAEMOLYTIC URAEMIC SYNDROME
     Dosage: 900 MG, QW
     Route: 042
     Dates: start: 20170330

REACTIONS (3)
  - Therapeutic response decreased [Unknown]
  - Platelet count decreased [Unknown]
  - Haemoglobin abnormal [Fatal]

NARRATIVE: CASE EVENT DATE: 20170406
